FAERS Safety Report 8482823 (Version 3)
Quarter: 2012Q4

REPORT INFORMATION
  Report Type: 
  Country: US (occurrence: US)
  Receive Date: 20120329
  Receipt Date: 20121101
  Transmission Date: 20130627
  Serious: Yes (Hospitalization, Disabling, Other)
  Sender: FDA-Public Use
  Company Number: US-009507513-1203USA03485

PATIENT

DRUGS (20)
  1. FOSAMAX [Suspect]
     Indication: OSTEOPENIA
     Route: 048
     Dates: start: 2000, end: 2010
  2. FOSAMAX [Suspect]
     Indication: OSTEOPOROSIS
     Dosage: UNK
     Route: 048
     Dates: start: 200511, end: 200711
  3. FOSAMAX D [Suspect]
     Indication: OSTEOPENIA
     Dosage: 70 mg, QW
     Route: 048
     Dates: start: 200701, end: 20071106
  4. FOSAMAX D [Suspect]
     Indication: OSTEOPOROSIS
  5. ALENDRONATE SODIUM [Suspect]
     Dosage: 70 mg, qw
     Route: 048
     Dates: start: 20090121, end: 20101129
  6. MOBIC [Concomitant]
  7. ULTRAM [Concomitant]
  8. REQUIP [Concomitant]
     Dosage: 25 mg, hs
  9. HYDROCODONE [Concomitant]
  10. PULMICORT [Concomitant]
  11. CALCIUM (UNSPECIFIED) [Concomitant]
  12. MK-9278 [Concomitant]
     Dosage: UNK
     Route: 048
  13. COLACE [Concomitant]
     Dosage: 100 mg, bid
     Route: 048
  14. FERROUS SULFATE [Concomitant]
  15. MAGNESIUM OXIDE [Concomitant]
     Dosage: 400 mg, bid
     Route: 048
  16. OXYCONTIN [Concomitant]
     Dosage: 10 mg, UNK
     Route: 048
  17. PROTONIX [Concomitant]
  18. FERROUS SULFATE (+) VITAMIN B COMPLEX [Concomitant]
     Dosage: UNK, bid
     Route: 048
  19. OS-CAL + D [Concomitant]
     Dosage: 500 mg, bid
     Route: 048
  20. VITAMINS (UNSPECIFIED) [Concomitant]

REACTIONS (45)
  - Femur fracture [Unknown]
  - Surgery [Unknown]
  - Haemoglobin decreased [Unknown]
  - Haematocrit decreased [Unknown]
  - Anaemia [Unknown]
  - Femur fracture [Unknown]
  - Basal cell carcinoma [Unknown]
  - Squamous cell carcinoma [Unknown]
  - Intramedullary rod insertion [Unknown]
  - Stress fracture [Unknown]
  - Bone density decreased [Unknown]
  - Osteoporosis [Unknown]
  - Cholecystectomy [Unknown]
  - Hyperthyroidism [Unknown]
  - Chest pain [Unknown]
  - Granuloma [Unknown]
  - Osteoarthritis [Unknown]
  - Restless legs syndrome [Unknown]
  - Chronic obstructive pulmonary disease [Unknown]
  - Weight decreased [Unknown]
  - Anxiety [Unknown]
  - Vitamin D decreased [Unknown]
  - Depression [Unknown]
  - Hyperlipidaemia [Unknown]
  - Biopsy breast [Unknown]
  - Mitral valve prolapse [Unknown]
  - Atrophic vulvovaginitis [Unknown]
  - Bronchitis [Unknown]
  - Coronary artery disease [Unknown]
  - Hypertension [Unknown]
  - Hypomagnesaemia [Unknown]
  - Herpes zoster [Unknown]
  - Spinal osteoarthritis [Unknown]
  - Neuralgia [Unknown]
  - Cardiac failure congestive [Unknown]
  - Cardiomyopathy [Unknown]
  - Bursitis [Unknown]
  - Tachycardia [Unknown]
  - Hiatus hernia [Unknown]
  - Intervertebral disc protrusion [Unknown]
  - Dyspnoea [Unknown]
  - Erythema [Unknown]
  - Gastrooesophageal reflux disease [Unknown]
  - Headache [Unknown]
  - Drug ineffective [Unknown]
